FAERS Safety Report 7717267-4 (Version None)
Quarter: 2011Q3

REPORT INFORMATION
  Report Type: 
  Country: None (occurrence: None)
  Receive Date: 20110826
  Receipt Date: 20110826
  Transmission Date: 20111222
  Serious: Yes (Death)
  Sender: FDA-Public Use
  Company Number: None

PATIENT
  Sex: Male

DRUGS (1)
  1. TRIAD STERILE ALCOHOL WIPES [Suspect]

REACTIONS (3)
  - PRODUCT QUALITY ISSUE [None]
  - LUNG NEOPLASM MALIGNANT [None]
  - PANCREATIC CARCINOMA [None]
